FAERS Safety Report 8284510-5 (Version None)
Quarter: 2012Q2

REPORT INFORMATION
  Report Type: 
  Country: None (occurrence: None)
  Receive Date: 20120413
  Receipt Date: 20110906
  Transmission Date: 20120825
  Serious: No
  Sender: FDA-Public Use
  Company Number: US-ASTRAZENECA-2011SE53603

PATIENT
  Sex: Female

DRUGS (2)
  1. NINE MONTHDS OF CHEMO [Concomitant]
  2. NEXIUM [Suspect]
     Route: 048

REACTIONS (4)
  - PAIN [None]
  - FEELING ABNORMAL [None]
  - MALAISE [None]
  - WRONG TECHNIQUE IN DRUG USAGE PROCESS [None]
